FAERS Safety Report 10716256 (Version 1)
Quarter: 2015Q1

REPORT INFORMATION
  Report Type: Report from Study
  Country: US (occurrence: US)
  Receive Date: 20150116
  Receipt Date: 20150116
  Transmission Date: 20150721
  Serious: Yes (Other)
  Sender: FDA-Public Use
  Company Number: US-JNJFOC-20150106760

PATIENT
  Sex: Female
  Weight: 77.11 kg

DRUGS (1)
  1. INVOKANA [Suspect]
     Active Substance: CANAGLIFLOZIN
     Indication: TYPE 2 DIABETES MELLITUS
     Route: 048
     Dates: start: 201408, end: 201412

REACTIONS (3)
  - Fungal infection [Recovered/Resolved]
  - Dysuria [Unknown]
  - Back pain [Recovered/Resolved]

NARRATIVE: CASE EVENT DATE: 2014
